FAERS Safety Report 22239642 (Version 2)
Quarter: 2023Q2

REPORT INFORMATION
  Report Type: Spontaneous
  Country: JP (occurrence: JP)
  Receive Date: 20230421
  Receipt Date: 20230627
  Transmission Date: 20230721
  Serious: Yes (Hospitalization, Disabling, Other)
  Sender: FDA-Public Use
  Company Number: JP-BAYER-2023A047503

PATIENT
  Sex: Male

DRUGS (7)
  1. EYLEA [Suspect]
     Active Substance: AFLIBERCEPT
     Indication: Diabetic retinal oedema
     Dosage: RIGHT EYE, SOLUTION FOR INJECTION IN PRE-FILLED SYRINGE, 40 MG/ML
     Route: 031
     Dates: start: 20230327, end: 20230327
  2. LEVOFLOXACIN HEMIHYDRATE [Concomitant]
     Active Substance: LEVOFLOXACIN
     Indication: Product used for unknown indication
     Dosage: 15%, RIGHT EYE
     Route: 047
     Dates: start: 20230324, end: 20230330
  3. TRUSOPT [Concomitant]
     Active Substance: DORZOLAMIDE HYDROCHLORIDE
     Indication: Product used for unknown indication
     Dosage: UNK
     Route: 047
     Dates: start: 20211004
  4. VILDAGLIPTIN [Concomitant]
     Active Substance: VILDAGLIPTIN
     Indication: Product used for unknown indication
     Dosage: 100MG
     Route: 048
     Dates: start: 20190902
  5. PRAVASTATIN SODIUM [Concomitant]
     Active Substance: PRAVASTATIN SODIUM
     Indication: Product used for unknown indication
     Dosage: 10MG
     Route: 048
     Dates: start: 20190902
  6. MITIGLINIDE [Concomitant]
     Active Substance: MITIGLINIDE
     Indication: Product used for unknown indication
     Dosage: 15MG
     Route: 048
     Dates: start: 20190902
  7. CARNACULIN [KALLIDINOGENASE] [Concomitant]
     Indication: Product used for unknown indication
     Dosage: 150MG
     Route: 048
     Dates: start: 20221106

REACTIONS (3)
  - Optic perineuritis [Recovering/Resolving]
  - Blindness [Unknown]
  - Macular degeneration [Unknown]

NARRATIVE: CASE EVENT DATE: 20230404
